FAERS Safety Report 8085493-3 (Version None)
Quarter: 2012Q1

REPORT INFORMATION
  Report Type: 
  Country: None (occurrence: None)
  Receive Date: 20120128
  Receipt Date: 20110520
  Transmission Date: 20120608
  Serious: No
  Sender: FDA-Public Use
  Company Number: US-ABBOTT-11P-163-0709739-00

PATIENT
  Sex: Female
  Weight: 63.56 kg

DRUGS (11)
  1. YASMIN [Concomitant]
     Indication: PRODUCT USED FOR UNKNOWN INDICATION
  2. HUMIRA [Suspect]
     Indication: POLYARTHRITIS
     Dates: start: 20110218, end: 20110218
  3. ASCORBIC ACID [Concomitant]
     Indication: VITAMIN SUPPLEMENTATION
  4. FOLIC ACID [Concomitant]
     Indication: PRODUCT USED FOR UNKNOWN INDICATION
     Dosage: DAILY
  5. HUMIRA [Suspect]
     Dates: start: 20110304
  6. PRILOSEC [Concomitant]
     Indication: DYSPEPSIA
     Dosage: DAILY
  7. HUMIRA [Suspect]
     Indication: COLITIS ULCERATIVE
     Dates: start: 20110204, end: 20110204
  8. ASACOL [Concomitant]
     Indication: COLITIS ULCERATIVE
     Dosage: 12 PILLS DAILY
  9. CALCIUM [Concomitant]
     Indication: PRODUCT USED FOR UNKNOWN INDICATION
     Dosage: DAILY
  10. IRON [Concomitant]
     Indication: PRODUCT USED FOR UNKNOWN INDICATION
  11. VITAMIN D [Concomitant]
     Indication: VITAMIN SUPPLEMENTATION
     Dosage: DAILY

REACTIONS (10)
  - HYPERAESTHESIA [None]
  - INJECTION SITE EXTRAVASATION [None]
  - PAIN [None]
  - INJECTION SITE PRURITUS [None]
  - INJECTION SITE ERYTHEMA [None]
  - RASH PAPULAR [None]
  - INCORRECT DOSE ADMINISTERED [None]
  - INJECTION SITE PAIN [None]
  - INJECTION SITE HAEMORRHAGE [None]
  - WRONG TECHNIQUE IN DRUG USAGE PROCESS [None]
